FAERS Safety Report 6895030-4 (Version None)
Quarter: 2010Q3

REPORT INFORMATION
  Report Type: 
  Country: None (occurrence: None)
  Receive Date: 20100802
  Receipt Date: 20100719
  Transmission Date: 20110219
  Serious: No
  Sender: FDA-Public Use
  Company Number: US-ELI_LILLY_AND_COMPANY-US201007006869

PATIENT
  Sex: Female

DRUGS (5)
  1. CYMBALTA [Suspect]
     Indication: DEPRESSION
     Dosage: 90 MG, DAILY (1/D)
     Route: 048
  2. LITHIUM [Concomitant]
  3. LUNESTA [Concomitant]
  4. ZYPREXA [Concomitant]
  5. CLONAPINE [Concomitant]

REACTIONS (1)
  - HEPATIC ENZYME INCREASED [None]
